FAERS Safety Report 10220196 (Version 1)
Quarter: 2014Q2

REPORT INFORMATION
  Report Type: Spontaneous
  Country: US (occurrence: US)
  Receive Date: 20140605
  Receipt Date: 20140605
  Transmission Date: 20141212
  Serious: Yes (Other)
  Sender: FDA-Public Use
  Company Number: US-ROCHE-1413618

PATIENT
  Sex: Male

DRUGS (2)
  1. KLONOPIN [Suspect]
     Indication: SEVERE MYOCLONIC EPILEPSY OF INFANCY
     Route: 065
  2. CLONAZEPAM [Suspect]
     Indication: SEVERE MYOCLONIC EPILEPSY OF INFANCY
     Route: 065

REACTIONS (3)
  - Convulsion [Unknown]
  - Convulsion [Unknown]
  - Epilepsy [Unknown]
